FAERS Safety Report 13340114 (Version 1)
Quarter: 2017Q1

REPORT INFORMATION
  Report Type: Spontaneous
  Country: HK (occurrence: HK)
  Receive Date: 20170316
  Receipt Date: 20170316
  Transmission Date: 20170428
  Serious: Yes (Other)
  Sender: FDA-Public Use
  Company Number: HK-ENDO PHARMACEUTICALS INC-2017-001144

PATIENT
  Age: 28 Year
  Sex: Female

DRUGS (2)
  1. KETALAR [Suspect]
     Active Substance: KETAMINE HYDROCHLORIDE
     Indication: SUBSTANCE USE
     Dosage: UNK UNK, UNKNOWN, 8 YEARS
     Route: 065
  2. KETALAR [Suspect]
     Active Substance: KETAMINE HYDROCHLORIDE
     Dosage: UNK UNK, UNKNOWN, RESUMED 4 YEARS AFTER THE OPERATION
     Route: 065

REACTIONS (8)
  - Lower urinary tract symptoms [Recovered/Resolved]
  - Pollakiuria [Recovered/Resolved]
  - Ureteric stenosis [Recovered/Resolved]
  - Bladder stenosis [Recovered/Resolved]
  - Drug abuse [Unknown]
  - Micturition urgency [Recovered/Resolved]
  - Urinary incontinence [Recovered/Resolved]
  - Hydronephrosis [Recovered/Resolved]
